FAERS Safety Report 5591633-8 (Version None)
Quarter: 2008Q1

REPORT INFORMATION
  Report Type: 
  Country: None (occurrence: None)
  Receive Date: 20080115
  Receipt Date: 20080109
  Transmission Date: 20080703
  Serious: Yes (Death)
  Sender: FDA-Public Use
  Company Number: GB-ROCHE-537993

PATIENT
  Age: 53 Year
  Sex: Female
  Weight: 80 kg

DRUGS (3)
  1. XENICAL [Suspect]
     Indication: OBESITY
     Route: 048
     Dates: start: 20060105, end: 20071218
  2. CLONIDINE [Concomitant]
     Indication: FLUSHING
     Route: 048
     Dates: start: 20040429, end: 20071218
  3. CO-DYDRAMOL [Concomitant]
     Indication: ARTHRALGIA
     Route: 048
     Dates: start: 20020101, end: 20071218

REACTIONS (2)
  - DIZZINESS [None]
  - MYOCARDIAL INFARCTION [None]
